FAERS Safety Report 11777684 (Version 1)
Quarter: 2015Q4

REPORT INFORMATION
  Report Type: Spontaneous
  Country: None (occurrence: None)
  Receive Date: 20151124
  Receipt Date: 20151124
  Transmission Date: 20160304
  Serious: Yes (Hospitalization)
  Sender: FDA-Public Use
  Company Number: None

PATIENT

DRUGS (1)
  1. CLOZAPINE 100MG [Suspect]
     Active Substance: CLOZAPINE

REACTIONS (3)
  - Somnolence [None]
  - Unresponsive to stimuli [None]
  - Drug dose omission [None]

NARRATIVE: CASE EVENT DATE: 20151113
